FAERS Safety Report 13696886 (Version 1)
Quarter: 2017Q2

REPORT INFORMATION
  Report Type: Spontaneous
  Country: US (occurrence: US)
  Receive Date: 20170627
  Receipt Date: 20170627
  Transmission Date: 20170830
  Serious: Yes (Life-Threatening, Hospitalization, Disabling, Other)
  Sender: FDA-Public Use
  Company Number: None

PATIENT
  Age: 68 Year
  Sex: Female
  Weight: 90 kg

DRUGS (4)
  1. CLONAZAPAM [Suspect]
     Active Substance: CLONAZEPAM
     Indication: INSOMNIA
  2. IBUPROFEN. [Concomitant]
     Active Substance: IBUPROFEN
  3. CPAP [Concomitant]
     Active Substance: DEVICE
  4. TRAZODONE [Concomitant]
     Active Substance: TRAZODONE HYDROCHLORIDE

REACTIONS (25)
  - Personality change [None]
  - Muscle spasms [None]
  - Myalgia [None]
  - Nausea [None]
  - Confusional state [None]
  - Loss of consciousness [None]
  - Concussion [None]
  - Paralysis [None]
  - Social problem [None]
  - Family stress [None]
  - Palpitations [None]
  - Hyperhidrosis [None]
  - Educational problem [None]
  - Memory impairment [None]
  - Seizure [None]
  - Apparent death [None]
  - Bedridden [None]
  - Self esteem decreased [None]
  - Aggression [None]
  - Cerebrovascular accident [None]
  - Loss of employment [None]
  - Blood pressure increased [None]
  - Headache [None]
  - Economic problem [None]
  - Quality of life decreased [None]

NARRATIVE: CASE EVENT DATE: 20080126
